FAERS Safety Report 9070037 (Version 1)
Quarter: 2013Q1

REPORT INFORMATION
  Report Type: Report from Study
  Country: US (occurrence: US)
  Receive Date: 20130129
  Receipt Date: 20130129
  Transmission Date: 20140127
  Serious: No
  Sender: FDA-Public Use
  Company Number: US-ABBOTT-12P-163-0941050-00

PATIENT
  Age: 31 None
  Sex: Female

DRUGS (4)
  1. HUMIRA 40 MG/0.8 ML PEN [Suspect]
     Indication: CROHN^S DISEASE
     Dates: start: 201005
  2. CALCIUM [Concomitant]
     Indication: MINERAL SUPPLEMENTATION
     Route: 048
  3. VITAMINS [Concomitant]
     Indication: VITAMIN SUPPLEMENTATION
     Route: 048
  4. LO LOESTRIN FE [Concomitant]
     Indication: CONTRACEPTION
     Route: 048

REACTIONS (3)
  - Attention deficit/hyperactivity disorder [Unknown]
  - Needle issue [Unknown]
  - Hypoaesthesia oral [Recovered/Resolved]
